FAERS Safety Report 11317421 (Version 1)
Quarter: 2015Q3

REPORT INFORMATION
  Report Type: Report from Study
  Country: US (occurrence: US)
  Receive Date: 20150728
  Receipt Date: 20150728
  Transmission Date: 20151125
  Serious: Yes (Other)
  Sender: FDA-Public Use
  Company Number: PHEH2015US014003

PATIENT
  Age: 69 Year
  Sex: Female

DRUGS (1)
  1. SANDOSTATIN LAR DEPOT [Suspect]
     Active Substance: OCTREOTIDE ACETATE
     Indication: PRODUCT USED FOR UNKNOWN INDICATION
     Route: 065

REACTIONS (6)
  - Transient ischaemic attack [Unknown]
  - Unresponsive to stimuli [Unknown]
  - Blood potassium decreased [Unknown]
  - Hypoxia [Unknown]
  - Blood electrolytes decreased [Unknown]
  - Pain [Unknown]

NARRATIVE: CASE EVENT DATE: 20150717
